FAERS Safety Report 4566567-8 (Version None)
Quarter: 2005Q1

REPORT INFORMATION
  Report Type: 
  Country: None (occurrence: None)
  Receive Date: 20050201
  Receipt Date: 20041202
  Transmission Date: 20050727
  Serious: Yes (Other)
  Sender: FDA-Public Use
  Company Number: PHBS2004CA16374

PATIENT
  Age: 78 Year
  Sex: Female

DRUGS (4)
  1. DIOVAN [Suspect]
     Dosage: 80 MG/DAY
     Route: 048
     Dates: start: 20040101
  2. ATIVAN [Concomitant]
  3. EVISTA [Concomitant]
  4. DIOVAN [Suspect]
     Dosage: 80 MG/DAY
     Route: 048
     Dates: start: 20040101, end: 20040101

REACTIONS (6)
  - BRONCHITIS [None]
  - BURNING SENSATION [None]
  - ERYTHEMA [None]
  - HYPERSENSITIVITY [None]
  - PRURITUS [None]
  - SKIN DISCOMFORT [None]
